FAERS Safety Report 6817524-X (Version None)
Quarter: 2010Q3

REPORT INFORMATION
  Report Type: 
  Country: None (occurrence: None)
  Receive Date: 20100706
  Receipt Date: 20100628
  Transmission Date: 20110219
  Serious: Yes (Hospitalization)
  Sender: FDA-Public Use
  Company Number: B0663854A

PATIENT
  Age: 65 Year
  Sex: Male
  Weight: 90 kg

DRUGS (2)
  1. AUGMENTIN XR [Suspect]
     Indication: PRODUCT USED FOR UNKNOWN INDICATION
     Route: 048
     Dates: start: 20100513, end: 20100518
  2. OMNIC [Concomitant]
     Indication: PROSTATIC ADENOMA
     Dosage: .4G PER DAY
     Route: 048
     Dates: start: 20060101

REACTIONS (2)
  - CHOLESTASIS [None]
  - JAUNDICE [None]
